FAERS Safety Report 7770391-2 (Version None)
Quarter: 2011Q3

REPORT INFORMATION
  Report Type: 
  Country: None (occurrence: None)
  Receive Date: 20110922
  Receipt Date: 20110202
  Transmission Date: 20111222
  Serious: No
  Sender: FDA-Public Use
  Company Number: US-ASTRAZENECA-2011SE05752

PATIENT
  Age: 53 Year
  Sex: Male
  Weight: 99.8 kg

DRUGS (4)
  1. CRESTOR [Concomitant]
     Indication: HYPERCHOLESTEROLAEMIA
  2. SEROQUEL XR [Suspect]
     Indication: SCHIZOPHRENIA
     Route: 048
     Dates: start: 20110104, end: 20110111
  3. JANUMET [Concomitant]
     Indication: DIABETES MELLITUS
  4. AVALAN [Concomitant]
     Indication: HYPERTENSION

REACTIONS (3)
  - ACTIVITIES OF DAILY LIVING IMPAIRED [None]
  - DRUG DOSE OMISSION [None]
  - DISEASE RECURRENCE [None]
